FAERS Safety Report 18216888 (Version 1)
Quarter: 2020Q3

REPORT INFORMATION
  Report Type: Spontaneous
  Country: IT (occurrence: IT)
  Receive Date: 20200901
  Receipt Date: 20200901
  Transmission Date: 20201103
  Serious: Yes (Other)
  Sender: FDA-Public Use
  Company Number: IT-HORIZON-PRE-0256-2020

PATIENT
  Age: 24 Year
  Sex: Male

DRUGS (3)
  1. PREDNISONE. [Suspect]
     Active Substance: PREDNISONE
     Indication: VERNAL KERATOCONJUNCTIVITIS
     Dosage: 5MG/DAY
     Route: 048
  2. OMALIZUMAB. [Concomitant]
     Active Substance: OMALIZUMAB
     Indication: VERNAL KERATOCONJUNCTIVITIS
     Dosage: 300MG EVERY 4 WEEKS
     Route: 058
     Dates: start: 201703
  3. CICLOSPORIN [Concomitant]
     Active Substance: CYCLOSPORINE
     Indication: VERNAL KERATOCONJUNCTIVITIS

REACTIONS (2)
  - Ocular hypertension [Unknown]
  - Iatrogenic injury [Unknown]

NARRATIVE: CASE EVENT DATE: 201708
